FAERS Safety Report 9793371 (Version 1)
Quarter: 2014Q1

REPORT INFORMATION
  Report Type: Spontaneous
  Country: GB (occurrence: GB)
  Receive Date: 20140102
  Receipt Date: 20140102
  Transmission Date: 20141002
  Serious: Yes (Other)
  Sender: FDA-Public Use
  Company Number: GB-TEVA-452974ISR

PATIENT
  Age: 47 Year
  Sex: Female
  Weight: 71.21 kg

DRUGS (2)
  1. CITALOPRAM [Suspect]
     Indication: ANXIETY
     Dosage: 30 MILLIGRAM DAILY;
     Route: 065
     Dates: start: 2013
  2. CITALOPRAM [Suspect]
     Indication: RESTLESS LEGS SYNDROME

REACTIONS (6)
  - Anxiety [Not Recovered/Not Resolved]
  - Restless legs syndrome [Not Recovered/Not Resolved]
  - Fatigue [Not Recovered/Not Resolved]
  - Asthenia [Not Recovered/Not Resolved]
  - Off label use [Not Recovered/Not Resolved]
  - Drug ineffective for unapproved indication [Not Recovered/Not Resolved]
